FAERS Safety Report 4820249-3 (Version None)
Quarter: 2005Q4

REPORT INFORMATION
  Report Type: 
  Country: None (occurrence: None)
  Receive Date: 20051104
  Receipt Date: 20051025
  Transmission Date: 20060501
  Serious: Yes (Hospitalization)
  Sender: FDA-Public Use
  Company Number: FR-BRISTOL-MYERS SQUIBB COMPANY-13160999

PATIENT
  Age: 57 Year
  Sex: Male

DRUGS (4)
  1. VASTEN TABS 20 MG [Suspect]
     Route: 048
     Dates: start: 20040510, end: 20040602
  2. TARGOCID [Suspect]
     Indication: ENTEROCOCCAL SEPSIS
     Route: 042
     Dates: start: 20040512, end: 20040602
  3. RIFADIN [Suspect]
     Indication: ENTEROCOCCAL SEPSIS
     Route: 048
     Dates: start: 20040519, end: 20040602
  4. MOPRAL [Concomitant]
     Route: 048
     Dates: start: 20040510

REACTIONS (4)
  - EOSINOPHILIA [None]
  - HYPERPYREXIA [None]
  - PRURITUS [None]
  - RASH ERYTHEMATOUS [None]
